FAERS Safety Report 8572836-7 (Version None)
Quarter: 2012Q3

REPORT INFORMATION
  Report Type: 
  Country: None (occurrence: None)
  Receive Date: 20120806
  Receipt Date: 20120731
  Transmission Date: 20120928
  Serious: Yes (Death, Hospitalization)
  Sender: FDA-Public Use
  Company Number: US-GILEAD-2012-0055924

PATIENT
  Sex: Male

DRUGS (1)
  1. LETAIRIS [Suspect]
     Indication: PULMONARY ARTERIAL HYPERTENSION
     Dosage: 5 MG, UNK
     Route: 048
     Dates: start: 20110322

REACTIONS (7)
  - SWELLING [None]
  - FALL [None]
  - HYPOTENSION [None]
  - SYNCOPE [None]
  - FLUID OVERLOAD [None]
  - CARDIAC FAILURE CONGESTIVE [None]
  - OEDEMA [None]
